FAERS Safety Report 11139582 (Version 3)
Quarter: 2015Q2

REPORT INFORMATION
  Report Type: Spontaneous
  Country: US (occurrence: US)
  Receive Date: 20150527
  Receipt Date: 20150611
  Transmission Date: 20150821
  Serious: Yes (Death, Hospitalization, Other)
  Sender: FDA-Public Use
  Company Number: US-AMGEN-USASP2015050601

PATIENT
  Age: 74 Year
  Sex: Female
  Weight: 60.32 kg

DRUGS (6)
  1. AMLODIPINE [Concomitant]
     Active Substance: AMLODIPINE BESYLATE
     Indication: HYPERTENSION
     Dosage: 5 MG, QD
     Route: 048
     Dates: start: 20150219, end: 20150418
  2. LEVOTHYROXINE [Concomitant]
     Active Substance: LEVOTHYROXINE
     Indication: HYPOTHYROIDISM
     Dosage: 75 MG, QD
     Route: 048
     Dates: start: 20130531, end: 20150418
  3. ENALAPRIL MALEATE. [Concomitant]
     Active Substance: ENALAPRIL MALEATE
     Dosage: 2.5 MG, QD
     Route: 048
     Dates: start: 20130531, end: 20150418
  4. DIGOX                              /00017701/ [Concomitant]
     Indication: CARDIAC FAILURE CONGESTIVE
     Dosage: 250 MG, QD
     Route: 048
     Dates: start: 20130514, end: 20150418
  5. PRAVASTATIN [Concomitant]
     Active Substance: PRAVASTATIN\PRAVASTATIN SODIUM
     Indication: HYPERLIPIDAEMIA
     Dosage: 40 MG, QD
     Route: 048
     Dates: start: 20130709, end: 20150418
  6. PROLIA [Suspect]
     Active Substance: DENOSUMAB
     Indication: OSTEOPOROSIS
     Dosage: 60 MG, Q6MO
     Route: 058
     Dates: start: 201303

REACTIONS (19)
  - Chronic obstructive pulmonary disease [Fatal]
  - Mitral valve disease [Unknown]
  - Mitral valve sclerosis [Unknown]
  - Hypercholesterolaemia [Unknown]
  - Carotid artery occlusion [Unknown]
  - Pulmonary hypertension [Unknown]
  - Diastolic dysfunction [Unknown]
  - Ventricular hypertrophy [Unknown]
  - Diabetes mellitus [Unknown]
  - Tricuspid valve incompetence [Unknown]
  - Coronary artery disease [Fatal]
  - Aortic valve incompetence [Unknown]
  - Angina pectoris [Unknown]
  - Acute myocardial infarction [Fatal]
  - Mitral valve incompetence [Unknown]
  - Ejection fraction abnormal [Unknown]
  - Myocardial ischaemia [Unknown]
  - Anaesthetic complication [Unknown]
  - Mitral valve prolapse [Unknown]

NARRATIVE: CASE EVENT DATE: 20140710
